FAERS Safety Report 18908952 (Version 1)
Quarter: 2021Q1

REPORT INFORMATION
  Report Type: Spontaneous
  Country: US (occurrence: US)
  Receive Date: 20210217
  Receipt Date: 20210217
  Transmission Date: 20210420
  Serious: No
  Sender: FDA-Public Use
  Company Number: None

PATIENT
  Age: 65 Year
  Sex: Female
  Weight: 39.6 kg

DRUGS (4)
  1. RECLAST [Suspect]
     Active Substance: ZOLEDRONIC ACID
     Indication: OSTEOPOROSIS
     Dates: start: 20210126, end: 20210126
  2. CALCIUM [Concomitant]
     Active Substance: CALCIUM
  3. MULTI?VITAMIN [Concomitant]
     Active Substance: .ALPHA.-TOCOPHEROL ACETATE, DL-\ASCORBIC ACID\CYANOCOBALAMIN\FLUORIDE ION\FOLIC ACID\NIACIN\PYRIDOXINE\RIBOFLAVIN\THIAMINE\VITAMIN A\VITAMIN D
  4. VITAMIN D3 [Concomitant]
     Active Substance: CHOLECALCIFEROL

REACTIONS (18)
  - Retching [None]
  - Skin haemorrhage [None]
  - Bone pain [None]
  - Diarrhoea [None]
  - Chills [None]
  - Feeling abnormal [None]
  - Myalgia [None]
  - Nausea [None]
  - Screaming [None]
  - Abdominal pain upper [None]
  - Therapeutic response shortened [None]
  - Scab [None]
  - Near death experience [None]
  - Blood pressure decreased [None]
  - Pain [None]
  - Dysstasia [None]
  - Eye swelling [None]
  - Eye pain [None]

NARRATIVE: CASE EVENT DATE: 20210126
